FAERS Safety Report 11889666 (Version 2)
Quarter: 2016Q1

REPORT INFORMATION
  Report Type: Spontaneous
  Country: FR (occurrence: FR)
  Receive Date: 20160105
  Receipt Date: 20160210
  Transmission Date: 20160526
  Serious: Yes (Death, Other)
  Sender: FDA-Public Use
  Company Number: FR-AMGEN-FRASP2015140590

PATIENT
  Age: 68 Year
  Sex: Male

DRUGS (12)
  1. LEVOFOLINATE [Suspect]
     Active Substance: LEVOLEUCOVORIN CALCIUM
     Indication: ADENOCARCINOMA OF COLON
     Dosage: 400 MG, UNK
     Route: 042
     Dates: start: 20151116, end: 20151116
  2. OXALIPLATIN. [Suspect]
     Active Substance: OXALIPLATIN
     Dosage: 150 MG, UNK
     Route: 042
     Dates: start: 201511, end: 201511
  3. ZALTRAP [Concomitant]
     Active Substance: ZIV-AFLIBERCEPT
     Dosage: 13 CYCLES UNK
     Dates: start: 201411, end: 201508
  4. ONDANSETRON ACCORD [Concomitant]
     Active Substance: ONDANSETRON
     Indication: PREMEDICATION
     Dosage: 8 MG, UNK
     Dates: start: 20160108
  5. VECTIBIX [Suspect]
     Active Substance: PANITUMUMAB
     Indication: ADENOCARCINOMA OF COLON
     Dosage: 600 MG, QD
     Route: 042
     Dates: start: 201403, end: 20151116
  6. LEUCOVORIN                         /00566701/ [Concomitant]
     Active Substance: LEUCOVORIN
     Dosage: 2 CYCLES UNK
     Dates: start: 201511, end: 201511
  7. IRINOTECAN [Concomitant]
     Active Substance: IRINOTECAN
     Dosage: 13 CYCLES ,UNK
     Dates: start: 201411, end: 201508
  8. FLUOROURACIL. [Concomitant]
     Active Substance: FLUOROURACIL
     Dosage: 12 CYCLES, UNK
     Dates: start: 201403, end: 201408
  9. FLUOROURACIL. [Concomitant]
     Active Substance: FLUOROURACIL
     Dosage: 2 CYCLES UNK
     Dates: start: 201511, end: 201511
  10. LEUCOVORIN                         /00566701/ [Concomitant]
     Active Substance: LEUCOVORIN
     Dosage: 12 CYCLES, UNK
     Dates: start: 201403, end: 201408
  11. METHYLPREDNISOLONE MYLAN           /00049602/ [Concomitant]
     Active Substance: METHYLPREDNISOLONE SODIUM SUCCINATE
     Indication: PREMEDICATION
     Dosage: 120 MG, UNK
     Dates: start: 20160108
  12. OXALIPLATIN. [Suspect]
     Active Substance: OXALIPLATIN
     Indication: ADENOCARCINOMA OF COLON
     Dosage: 12 CYCLES, UNK
     Route: 042
     Dates: start: 201403, end: 201408

REACTIONS (5)
  - Pulse abnormal [Unknown]
  - Loss of consciousness [Unknown]
  - Pain [Unknown]
  - Infarction [Fatal]
  - Cyanosis [Unknown]
